FAERS Safety Report 19951591 (Version 1)
Quarter: 2021Q4

REPORT INFORMATION
  Report Type: Spontaneous
  Country: GB (occurrence: GB)
  Receive Date: 20211013
  Receipt Date: 20211013
  Transmission Date: 20220303
  Serious: Yes (Other)
  Sender: FDA-Public Use
  Company Number: GB-LUPIN PHARMACEUTICALS INC.-2021-19309

PATIENT
  Age: 70 Year
  Sex: Male

DRUGS (7)
  1. METHYLPREDNISOLONE [Suspect]
     Active Substance: METHYLPREDNISOLONE
     Indication: Idiopathic orbital inflammation
     Dosage: 1.5 GRAM
     Route: 042
  2. DORZOLAMIDE HYDROCHLORIDE\TIMOLOL MALEATE [Suspect]
     Active Substance: DORZOLAMIDE HYDROCHLORIDE\TIMOLOL MALEATE
     Indication: Ocular hypertension
     Dosage: UNK UNK, BID (TO THE RIGHT EYE)
     Route: 061
  3. LATANOPROST [Suspect]
     Active Substance: LATANOPROST
     Indication: Ocular hypertension
     Dosage: UNK, (AT NIGHT TO THE RIGHT EYE)
     Route: 061
  4. BRIMONIDINE [Suspect]
     Active Substance: BRIMONIDINE TARTRATE
     Indication: Ocular hypertension
     Dosage: UNK, BID (TO THE RIGHT EYE)
     Route: 061
  5. METHOTREXATE [Concomitant]
     Active Substance: METHOTREXATE
     Indication: Idiopathic orbital inflammation
     Dosage: 7.5 MILLIGRAM EVERY WEEK
     Route: 048
  6. FOLIC ACID [Concomitant]
     Active Substance: FOLIC ACID
     Indication: Idiopathic orbital inflammation
     Dosage: 5 MILLIGRAM, QD
     Route: 065
  7. ACETAZOLAMIDE [Concomitant]
     Active Substance: ACETAZOLAMIDE
     Indication: Ocular hypertension
     Dosage: 250 MILLIGRAM, BID
     Route: 048

REACTIONS (3)
  - Punctate keratitis [Recovering/Resolving]
  - Drug ineffective [Unknown]
  - Drug intolerance [Recovering/Resolving]
